FAERS Safety Report 4332742-0 (Version None)
Quarter: 2004Q1

REPORT INFORMATION
  Report Type: 
  Country: None (occurrence: None)
  Receive Date: 20040330
  Receipt Date: 20040317
  Transmission Date: 20041129
  Serious: Yes (Other)
  Sender: FDA-Public Use
  Company Number: 2004203926SE

PATIENT
  Sex: Female

DRUGS (1)
  1. PREDNISOLON PHARMACIA (PREDNISONE) TABLET [Suspect]
     Indication: MUSCULOSKELETAL PAIN
     Dates: start: 20001001

REACTIONS (3)
  - SKIN STRIAE [None]
  - SPINAL COMPRESSION FRACTURE [None]
  - WEIGHT INCREASED [None]
